FAERS Safety Report 5104935-6 (Version None)
Quarter: 2006Q3

REPORT INFORMATION
  Report Type: 
  Country: None (occurrence: None)
  Receive Date: 20060908
  Receipt Date: 20060908
  Transmission Date: 20061208
  Serious: Yes (Hospitalization)
  Sender: FDA-Public Use
  Company Number: None

PATIENT
  Age: 38 Year
  Sex: Male
  Weight: 81.6 kg

DRUGS (3)
  1. GLEEVEC [Suspect]
     Indication: GLIOBLASTOMA MULTIFORME
     Dosage: 600 MG BID X 8 DAYS PO
     Route: 048
     Dates: start: 20060830
  2. TEMODAR [Suspect]
     Indication: GLIOBLASTOMA MULTIFORME
     Dosage: 200 MG/M2 DAILY X 5 DAYS PO
     Route: 048
     Dates: start: 20060902
  3. CONCERTA [Concomitant]

REACTIONS (7)
  - DEHYDRATION [None]
  - ELECTROLYTE IMBALANCE [None]
  - HYPOALBUMINAEMIA [None]
  - HYPOCALCAEMIA [None]
  - HYPOKALAEMIA [None]
  - HYPOPHOSPHATAEMIA [None]
  - VOMITING [None]
